FAERS Safety Report 10163073 (Version 1)
Quarter: 2014Q2

REPORT INFORMATION
  Report Type: Report from Study
  Country: US (occurrence: US)
  Receive Date: 20140509
  Receipt Date: 20140509
  Transmission Date: 20141212
  Serious: Yes (Other)
  Sender: FDA-Public Use
  Company Number: US-ACTELION-A-US2014-98456

PATIENT
  Age: 60 Year
  Sex: Female

DRUGS (2)
  1. MACITENTAN [Suspect]
     Indication: CONNECTIVE TISSUE DISORDER
     Dosage: 10 MG, QD
     Route: 048
  2. ADCIRCA [Concomitant]

REACTIONS (2)
  - Sinus operation [Unknown]
  - Skin exfoliation [Unknown]
